FAERS Safety Report 22372189 (Version 22)
Quarter: 2025Q3

REPORT INFORMATION
  Report Type: Spontaneous
  Country: US (occurrence: US)
  Receive Date: 20230526
  Receipt Date: 20250803
  Transmission Date: 20251020
  Serious: Yes (Other)
  Sender: ALEXION PHARMACEUTICALS
  Company Number: US-ALXN-A202306878

PATIENT
  Age: 54 Year
  Sex: Female

DRUGS (4)
  1. SOLIRIS [Suspect]
     Active Substance: ECULIZUMAB
     Indication: Paroxysmal nocturnal haemoglobinuria
     Route: 065
  2. SOLIRIS [Suspect]
     Active Substance: ECULIZUMAB
     Indication: Myasthenia gravis
     Route: 065
  3. SOLIRIS [Suspect]
     Active Substance: ECULIZUMAB
     Route: 065
  4. FABHALTA [Suspect]
     Active Substance: IPTACOPAN HYDROCHLORIDE
     Route: 065

REACTIONS (11)
  - Extravascular haemolysis [Unknown]
  - Bone marrow failure [Unknown]
  - Cerebral thrombosis [Unknown]
  - Aphasia [Unknown]
  - Product dispensing error [Unknown]
  - Infusion site scar [Unknown]
  - Diplopia [Unknown]
  - Madarosis [Unknown]
  - Menopause [Unknown]
  - Fatigue [Not Recovered/Not Resolved]
  - Blood cholesterol abnormal [Unknown]
